FAERS Safety Report 17697445 (Version 2)
Quarter: 2022Q3

REPORT INFORMATION
  Report Type: Spontaneous
  Country: CN (occurrence: CN)
  Receive Date: 20200423
  Receipt Date: 20220929
  Transmission Date: 20221027
  Serious: Yes (Other)
  Sender: FDA-Public Use
  Company Number: CN-SUN PHARMACEUTICAL INDUSTRIES LTD-2020R1-244518

PATIENT
  Age: 27 Year
  Sex: Female

DRUGS (3)
  1. GEMCITABINE [Suspect]
     Active Substance: GEMCITABINE
     Indication: Metastasis
     Dosage: 1.6 G
     Route: 065
  2. APATINIB [Suspect]
     Active Substance: APATINIB
     Indication: Metastasis
     Dosage: 0.25 GRAM
     Route: 065
  3. CISPLATIN [Suspect]
     Active Substance: CISPLATIN
     Indication: Metastasis
     Dosage: 0.12
     Route: 065

REACTIONS (3)
  - Myelosuppression [Recovering/Resolving]
  - Night sweats [Unknown]
  - Decreased appetite [Unknown]
